FAERS Safety Report 13298027 (Version 2)
Quarter: 2017Q1

REPORT INFORMATION
  Report Type: Spontaneous
  Country: US (occurrence: US)
  Receive Date: 20170306
  Receipt Date: 20170331
  Transmission Date: 20170428
  Serious: Yes (Death, Hospitalization, Other)
  Sender: FDA-Public Use
  Company Number: US-ASTELLAS-2017US005914

PATIENT
  Age: 97 Year
  Sex: Male

DRUGS (2)
  1. XTANDI [Suspect]
     Active Substance: ENZALUTAMIDE
     Indication: PROSTATE CANCER METASTATIC
     Route: 048
     Dates: start: 20170210, end: 20170211
  2. XTANDI [Suspect]
     Active Substance: ENZALUTAMIDE
     Indication: PROSTATIC SPECIFIC ANTIGEN INCREASED
     Route: 048
     Dates: start: 20170212, end: 20170212

REACTIONS (21)
  - Asthenia [Unknown]
  - Decreased appetite [Unknown]
  - Retching [Unknown]
  - Product size issue [Unknown]
  - Groin pain [Unknown]
  - Pelvic pain [Unknown]
  - Insomnia [Unknown]
  - Diarrhoea [Unknown]
  - Diarrhoea [Unknown]
  - Tremor [Unknown]
  - Headache [Unknown]
  - Inappropriate schedule of drug administration [Unknown]
  - Underdose [Unknown]
  - Sepsis [Fatal]
  - Dysphagia [Unknown]
  - Respiratory failure [Fatal]
  - Feeling cold [Unknown]
  - Back pain [Unknown]
  - Malignant neoplasm progression [Fatal]
  - Urine abnormality [Unknown]
  - Dehydration [Unknown]

NARRATIVE: CASE EVENT DATE: 20170211
